FAERS Safety Report 21745601 (Version 1)
Quarter: 2022Q4

REPORT INFORMATION
  Report Type: Spontaneous
  Country: PT (occurrence: PT)
  Receive Date: 20221219
  Receipt Date: 20221219
  Transmission Date: 20230113
  Serious: Yes (Other)
  Sender: FDA-Public Use
  Company Number: None

PATIENT
  Age: 44 Year
  Sex: Female
  Weight: 84 kg

DRUGS (8)
  1. TRALOKINUMAB [Suspect]
     Active Substance: TRALOKINUMAB
     Indication: Dermatitis atopic
     Dosage: 300MG 15/15 DIAS
     Dates: start: 20220826
  2. TRALOKINUMAB [Suspect]
     Active Substance: TRALOKINUMAB
     Indication: Dermatitis atopic
     Dosage: 300MG 15/15 DIAS
     Dates: start: 20220826
  3. TRALOKINUMAB [Suspect]
     Active Substance: TRALOKINUMAB
     Indication: Dermatitis atopic
     Dosage: 300MG 15/15 DIAS
     Dates: start: 20220826
  4. TRALOKINUMAB [Suspect]
     Active Substance: TRALOKINUMAB
     Indication: Dermatitis atopic
     Dosage: 300MG 15/15 DIAS
     Dates: start: 20220826
  5. CLOBETASOL [Concomitant]
     Active Substance: CLOBETASOL
     Indication: Product used for unknown indication
     Dosage: APLICAR NAS ZONAS LESIONADAS NO CORPO
  6. DROSPIRENONE [Concomitant]
     Active Substance: DROSPIRENONE
     Indication: Product used for unknown indication
     Dosage: ^DROSPIRENONA + ETINILESTRADIOL (YASMINELLE)/ DIA^
  7. DEVICE [Suspect]
     Active Substance: DEVICE
     Indication: Dermatitis atopic
  8. ELIDEL [Concomitant]
     Active Substance: PIMECROLIMUS
     Indication: Product used for unknown indication
     Dosage: APLICA NA CARA (BOCA E QUEIXO) ? NOITE, COM BOA TOLERABILIDADE

REACTIONS (9)
  - Drug ineffective [Not Recovered/Not Resolved]
  - Incorrect dose administered [Unknown]
  - Drug ineffective [Not Recovered/Not Resolved]
  - Conjunctivitis bacterial [Recovered/Resolved with Sequelae]
  - Respiratory tract infection [Recovered/Resolved]
  - Asthma [Recovered/Resolved]
  - Respiratory tract infection [Recovered/Resolved]
  - Asthma [Recovered/Resolved]
  - Incorrect dose administered [Unknown]

NARRATIVE: CASE EVENT DATE: 20220826
